FAERS Safety Report 23499578 (Version 1)
Quarter: 2024Q1

REPORT INFORMATION
  Report Type: Other
  Country: NZ (occurrence: NZ)
  Receive Date: 20240208
  Receipt Date: 20240208
  Transmission Date: 20240409
  Serious: Yes (Other)
  Sender: FDA-Public Use
  Company Number: NZ-TASMAN PHARMA, INC.-2024TSM00043

PATIENT
  Age: 66 Year
  Sex: Male

DRUGS (5)
  1. CLOZAPINE [Suspect]
     Active Substance: CLOZAPINE
  2. ISENTRESS [Suspect]
     Active Substance: RALTEGRAVIR POTASSIUM
  3. PAROXETINE [Concomitant]
     Active Substance: PAROXETINE
  4. CARBIDOPA AND LEVODOPA [Concomitant]
     Active Substance: CARBIDOPA\LEVODOPA
  5. CLONAZEPAM [Concomitant]
     Active Substance: CLONAZEPAM

REACTIONS (5)
  - Faecaloma [Unknown]
  - Intestinal obstruction [Unknown]
  - Neutrophilia [Unknown]
  - Haemoglobin decreased [Unknown]
  - Haematocrit decreased [Unknown]
